FAERS Safety Report 4822025-4 (Version None)
Quarter: 2005Q4

REPORT INFORMATION
  Report Type: 
  Country: None (occurrence: None)
  Receive Date: 20051107
  Receipt Date: 20051031
  Transmission Date: 20060501
  Serious: Yes (Hospitalization)
  Sender: FDA-Public Use
  Company Number: US-JNJFOC-20051100343

PATIENT
  Age: 4 Year
  Sex: Female
  Weight: 12.6 kg

DRUGS (3)
  1. CHILDREN'S TYLENOL [Suspect]
     Route: 048
  2. CHILDREN'S TYLENOL [Suspect]
     Indication: DRUG USE FOR UNKNOWN INDICATION
     Dosage: 1 TSPN (ESTIMATED); }24 HOUR {=1 WEEK
     Route: 048
  3. TYLENOL W/ CODEINE [Suspect]
     Indication: DRUG USE FOR UNKNOWN INDICATION
     Dosage: 1 TSPN (ESTIMATED); }24 HR {=1 WEEK
     Route: 048

REACTIONS (4)
  - MEDICATION ERROR [None]
  - OVERDOSE [None]
  - PYREXIA [None]
  - VOMITING [None]
